FAERS Safety Report 19262004 (Version 2)
Quarter: 2022Q4

REPORT INFORMATION
  Report Type: Spontaneous
  Country: US (occurrence: US)
  Receive Date: 20210516
  Receipt Date: 20221003
  Transmission Date: 20230113
  Serious: Yes (Death, Other)
  Sender: FDA-Public Use
  Company Number: US-SA-SAC20210511000826

PATIENT
  Age: 54 Year
  Sex: Female

DRUGS (1)
  1. ZANTAC [Suspect]
     Active Substance: RANITIDINE HYDROCHLORIDE
     Indication: Dyspepsia
     Dosage: 25 MG, QD
     Dates: start: 200705, end: 201912

REACTIONS (4)
  - Oesophageal carcinoma [Fatal]
  - Disease progression [Fatal]
  - Gastric cancer stage III [Fatal]
  - Disease progression [Fatal]

NARRATIVE: CASE EVENT DATE: 20200603
